FAERS Safety Report 11822058 (Version 26)
Quarter: 2018Q3

REPORT INFORMATION
  Report Type: Spontaneous
  Country: US (occurrence: US)
  Receive Date: 20151210
  Receipt Date: 20180921
  Transmission Date: 20181010
  Serious: Yes (Other)
  Sender: FDA-Public Use
  Company Number: US-JNJFOC-20150206975

PATIENT
  Age: 75 Year
  Sex: Male

DRUGS (9)
  1. IMBRUVICA [Suspect]
     Active Substance: IBRUTINIB
     Indication: CHRONIC LYMPHOCYTIC LEUKAEMIA
     Route: 048
     Dates: start: 20140930, end: 20180413
  2. PROSCAR [Concomitant]
     Active Substance: FINASTERIDE
     Indication: PROSTATIC DISORDER
  3. VALACYCLOVIR [Concomitant]
     Active Substance: VALACYCLOVIR HYDROCHLORIDE
  4. FLOMAX [Concomitant]
     Active Substance: TAMSULOSIN HYDROCHLORIDE
     Indication: PROSTATIC DISORDER
  5. TRIAMCINOLONE [Concomitant]
     Active Substance: TRIAMCINOLONE
  6. RAPAFLO [Concomitant]
     Active Substance: SILODOSIN
     Indication: PROSTATIC DISORDER
  7. GENTAMICIN. [Concomitant]
     Active Substance: GENTAMICIN
  8. LIDOCAINE/PRILOCAINE [Concomitant]
     Active Substance: LIDOCAINE\PRILOCAINE
  9. FLUCONAZOLE. [Concomitant]
     Active Substance: FLUCONAZOLE
     Indication: MENINGITIS

REACTIONS (35)
  - Drug interaction [Unknown]
  - Nasopharyngitis [Not Recovered/Not Resolved]
  - Herpes zoster [Recovered/Resolved]
  - Abdominal pain upper [Recovered/Resolved]
  - Pruritus [Not Recovered/Not Resolved]
  - Anaemia [Recovered/Resolved]
  - Cough [Not Recovered/Not Resolved]
  - Haematuria [Not Recovered/Not Resolved]
  - Epistaxis [Not Recovered/Not Resolved]
  - Diarrhoea [Not Recovered/Not Resolved]
  - Prostatomegaly [Not Recovered/Not Resolved]
  - Abdominal distension [Not Recovered/Not Resolved]
  - Unevaluable event [Unknown]
  - Adverse event [Unknown]
  - Platelet count decreased [Recovering/Resolving]
  - Muscle spasms [Recovering/Resolving]
  - Productive cough [Not Recovered/Not Resolved]
  - Dermatitis allergic [Recovered/Resolved]
  - Sinus congestion [Recovering/Resolving]
  - Feeling cold [Unknown]
  - Abdominal pain [Not Recovered/Not Resolved]
  - Pneumonia [Unknown]
  - Haemorrhage urinary tract [Recovered/Resolved]
  - Rhinitis allergic [Not Recovered/Not Resolved]
  - Rhinorrhoea [Not Recovered/Not Resolved]
  - Nasal discomfort [Unknown]
  - Oropharyngeal pain [Recovering/Resolving]
  - Cataract [Not Recovered/Not Resolved]
  - Respiratory tract congestion [Not Recovered/Not Resolved]
  - Weight increased [Not Recovered/Not Resolved]
  - Drug dose omission [Unknown]
  - Eye pruritus [Not Recovered/Not Resolved]
  - Urinary tract infection [Not Recovered/Not Resolved]
  - Malaise [Not Recovered/Not Resolved]
  - Joint swelling [Recovering/Resolving]

NARRATIVE: CASE EVENT DATE: 2014
